FAERS Safety Report 16118230 (Version 1)
Quarter: 2019Q1

REPORT INFORMATION
  Report Type: Spontaneous
  Country: US (occurrence: US)
  Receive Date: 20190326
  Receipt Date: 20190326
  Transmission Date: 20190418
  Serious: Yes (Hospitalization)
  Sender: FDA-Public Use
  Company Number: US-SMITH AND NEPHEW, INC-2019SMT00021

PATIENT
  Age: 62 Year
  Sex: Female
  Weight: 105.67 kg

DRUGS (4)
  1. UNSPECIFIED MEDICATIONS [Concomitant]
     Active Substance: UNSPECIFIED INGREDIENT
  2. COLLAGENASE SANTYL [Suspect]
     Active Substance: COLLAGENASE CLOSTRIDIUM HISTOLYTICUM
     Dosage: A THIN COAT, UNK
     Route: 061
     Dates: end: 201903
  3. COLLAGENASE SANTYL [Suspect]
     Active Substance: COLLAGENASE CLOSTRIDIUM HISTOLYTICUM
     Dosage: A THIN COAT, 2-3 TIMES DAILY
     Dates: start: 201810
  4. COLLAGENASE SANTYL [Suspect]
     Active Substance: COLLAGENASE CLOSTRIDIUM HISTOLYTICUM
     Indication: WOUND
     Dosage: A THIN COAT, 2-3 TIMES DAILY
     Route: 061
     Dates: start: 2018, end: 201810

REACTIONS (2)
  - Underdose [Recovering/Resolving]
  - Bacteraemia [Unknown]

NARRATIVE: CASE EVENT DATE: 201810
